FAERS Safety Report 4755267-7 (Version None)
Quarter: 2005Q3

REPORT INFORMATION
  Report Type: 
  Country: None (occurrence: None)
  Receive Date: 20050829
  Receipt Date: 20050603
  Transmission Date: 20060218
  Serious: Yes (Hospitalization, Disabling)
  Sender: FDA-Public Use
  Company Number: US-MERCK-0506USA00970

PATIENT
  Age: 54 Year
  Sex: Female
  Weight: 73 kg

DRUGS (14)
  1. VIOXX [Suspect]
     Indication: ARTHRITIS
     Route: 048
     Dates: start: 20030301, end: 20040901
  2. VIOXX [Suspect]
     Indication: PAIN
     Route: 048
     Dates: start: 20030301, end: 20040901
  3. LEVOXYL [Concomitant]
     Indication: THYROID DISORDER
     Route: 065
     Dates: start: 19921201
  4. WELLBUTRIN [Concomitant]
     Indication: EX-SMOKER
     Route: 065
  5. DETROL [Concomitant]
     Indication: URINARY INCONTINENCE
     Route: 065
  6. IMITREX [Concomitant]
     Indication: MIGRAINE
     Route: 065
     Dates: start: 20001201, end: 20040501
  7. NEURONTIN [Concomitant]
     Indication: MIGRAINE
     Route: 065
     Dates: start: 19941201
  8. NEURONTIN [Concomitant]
     Indication: ARTHRITIS
     Route: 065
     Dates: start: 19941201
  9. FLEXERIL [Concomitant]
     Indication: MIGRAINE
     Route: 065
     Dates: start: 19941201
  10. FLEXERIL [Concomitant]
     Indication: ARTHRITIS
     Route: 065
     Dates: start: 19941201
  11. DICLOFENAC [Concomitant]
     Indication: ARTHRITIS
     Route: 065
     Dates: start: 19991201, end: 20040501
  12. XALATAN [Concomitant]
     Indication: GLAUCOMA
     Route: 065
  13. VENTOLIN [Concomitant]
     Indication: ASTHMA
     Route: 065
  14. NICOTROL [Concomitant]
     Route: 065

REACTIONS (14)
  - ANXIETY [None]
  - ASTHMA [None]
  - ATHEROSCLEROSIS [None]
  - BLOOD CHOLESTEROL INCREASED [None]
  - CAROTID ARTERY STENOSIS [None]
  - CEREBROVASCULAR ACCIDENT [None]
  - EMOTIONAL DISTRESS [None]
  - FALL [None]
  - GASTROOESOPHAGEAL REFLUX DISEASE [None]
  - HYPERTENSION [None]
  - HYPOTHYROIDISM [None]
  - PNEUMONIA [None]
  - TRANSIENT ISCHAEMIC ATTACK [None]
  - WEIGHT DECREASED [None]
